FAERS Safety Report 8216472-0 (Version None)
Quarter: 2012Q1

REPORT INFORMATION
  Report Type: 
  Country: None (occurrence: None)
  Receive Date: 20120316
  Receipt Date: 20120313
  Transmission Date: 20120608
  Serious: Yes (Other)
  Sender: FDA-Public Use
  Company Number: US-AMGEN-USASP2011037239

PATIENT
  Age: 31 Year
  Sex: Female

DRUGS (10)
  1. ENBREL [Suspect]
     Dosage: 25 MG, 2 TIMES/WK
     Dates: start: 20101216
  2. ENBREL [Suspect]
     Dosage: 25 MG, 2 TIMES/WK
     Dates: start: 20070409
  3. TOPAMAX [Concomitant]
     Dosage: UNK
  4. ENBREL [Suspect]
     Indication: RHEUMATOID ARTHRITIS
     Dosage: 25 MG, 2 TIMES/WK
     Dates: start: 20120201
  5. ENBREL [Suspect]
     Dosage: 50 MG, QWK
  6. PROZAC [Concomitant]
     Dosage: UNK
  7. ENBREL [Suspect]
     Dosage: 25 MG, QWK
     Dates: start: 20100226, end: 20110401
  8. PREDNISONE [Concomitant]
     Dosage: UNK
  9. MS CONTIN [Concomitant]
     Dosage: UNK
  10. OXYCODONE HCL [Concomitant]
     Dosage: UNK

REACTIONS (19)
  - BRAIN NEOPLASM [None]
  - RHEUMATOID ARTHRITIS [None]
  - GASTROOESOPHAGEAL REFLUX DISEASE [None]
  - THYROID DISORDER [None]
  - RENAL PAIN [None]
  - CENTRAL NERVOUS SYSTEM LESION [None]
  - HOT FLUSH [None]
  - NASOPHARYNGITIS [None]
  - COLD SWEAT [None]
  - LETHARGY [None]
  - PAIN [None]
  - URINARY RETENTION [None]
  - GASTROINTESTINAL CARCINOMA [None]
  - MOBILITY DECREASED [None]
  - RENAL DISORDER [None]
  - MEMORY IMPAIRMENT [None]
  - INJECTION SITE PAIN [None]
  - MALIGNANT MELANOMA [None]
  - ABASIA [None]
